FAERS Safety Report 9255205 (Version 3)
Quarter: 2014Q2

REPORT INFORMATION
  Report Type: Spontaneous
  Country: JP (occurrence: JP)
  Receive Date: 20130425
  Receipt Date: 20140606
  Transmission Date: 20141212
  Serious: Yes (Other)
  Sender: FDA-Public Use
  Company Number: JP-JNJFOC-20130411953

PATIENT
  Age: 81 Year
  Sex: Male
  Weight: 65 kg

DRUGS (7)
  1. XARELTO [Suspect]
     Indication: CEREBROVASCULAR ACCIDENT PROPHYLAXIS
     Route: 048
     Dates: start: 20130104, end: 20130410
  2. XARELTO [Suspect]
     Indication: ATRIAL FIBRILLATION
     Route: 048
     Dates: start: 20130104, end: 20130410
  3. PLAVIX [Concomitant]
     Indication: CEREBRAL INFARCTION
     Route: 048
  4. DIGOSIN [Concomitant]
     Indication: ATRIAL FIBRILLATION
     Route: 048
  5. REZALTAS [Concomitant]
     Indication: HYPERTENSION
     Route: 048
  6. URSO [Concomitant]
     Indication: CHRONIC HEPATITIS
     Route: 048
  7. VOLTAREN [Concomitant]
     Indication: BACK PAIN
     Route: 054

REACTIONS (1)
  - Gastric ulcer [Unknown]
